FAERS Safety Report 5311682-4 (Version None)
Quarter: 2007Q2

REPORT INFORMATION
  Report Type: 
  Country: None (occurrence: None)
  Receive Date: 20070430
  Receipt Date: 20061110
  Transmission Date: 20071010
  Serious: No
  Sender: FDA-Public Use
  Company Number: 2006UW26262

PATIENT
  Age: 50 Year
  Sex: Female

DRUGS (5)
  1. ZOMIG-ZMT [Suspect]
     Route: 048
     Dates: start: 20060601
  2. ESTROGEL [Concomitant]
     Indication: MENOPAUSE
  3. CARBOCAL D [Concomitant]
     Indication: OSTEOPOROSIS
     Route: 048
  4. APO-NAPRO-NA [Concomitant]
     Indication: PAIN
     Route: 048
  5. CLONAZEPAM [Concomitant]
     Indication: INSOMNIA
     Route: 048

REACTIONS (1)
  - SKIN BURNING SENSATION [None]
